FAERS Safety Report 20536893 (Version 2)
Quarter: 2022Q1

REPORT INFORMATION
  Report Type: Spontaneous
  Country: IT (occurrence: IT)
  Receive Date: 20220302
  Receipt Date: 20220319
  Transmission Date: 20220423
  Serious: Yes (Other)
  Sender: FDA-Public Use
  Company Number: IT-NOVARTISPH-NVSC2022IT047840

PATIENT
  Age: 38 Year
  Sex: Female

DRUGS (2)
  1. FINGOLIMOD [Interacting]
     Active Substance: FINGOLIMOD
     Indication: Product used for unknown indication
     Dosage: 0.5 MG
     Route: 065
     Dates: start: 2013
  2. CORTISONE [Interacting]
     Active Substance: CORTISONE
     Indication: Product used for unknown indication
     Dosage: 2 BOLUSES
     Route: 065
     Dates: start: 202110

REACTIONS (5)
  - Hepatitis toxic [Unknown]
  - Transaminases increased [Not Recovered/Not Resolved]
  - Hepatic necrosis [Unknown]
  - Hepatic fibrosis [Unknown]
  - Potentiating drug interaction [Unknown]

NARRATIVE: CASE EVENT DATE: 20220101
